FAERS Safety Report 24429545 (Version 1)
Quarter: 2024Q4

REPORT INFORMATION
  Report Type: Spontaneous
  Country: US (occurrence: US)
  Receive Date: 20241012
  Receipt Date: 20241012
  Transmission Date: 20250115
  Serious: No
  Sender: CELLTRION
  Company Number: US-CELLTRION INC.-2024US014793

PATIENT

DRUGS (1)
  1. INFLECTRA [Suspect]
     Active Substance: INFLIXIMAB-DYYB
     Indication: Crohn^s disease
     Dosage: MAINTENANCE DOSE EVERY 6 WEEKS AND HAS HAD 3 DOSES
     Route: 065

REACTIONS (3)
  - Piloerection [Unknown]
  - Pruritus [Unknown]
  - Intentional product use issue [Unknown]
